FAERS Safety Report 9831063 (Version 2)
Quarter: 2014Q1

REPORT INFORMATION
  Report Type: Spontaneous
  Country: JP (occurrence: JP)
  Receive Date: 20140120
  Receipt Date: 20140120
  Transmission Date: 20141002
  Serious: Yes (Life-Threatening, Other)
  Sender: FDA-Public Use
  Company Number: JP-ROCHE-1298392

PATIENT
  Age: 67 Year
  Sex: Female

DRUGS (14)
  1. AVASTIN [Suspect]
     Indication: LUNG ADENOCARCINOMA METASTATIC
     Route: 041
     Dates: start: 20111108, end: 20131016
  2. CISPLATIN [Concomitant]
     Indication: LUNG ADENOCARCINOMA METASTATIC
     Route: 041
     Dates: start: 20111108, end: 20120228
  3. GEMCITABINE HYDROCHLORIDE [Concomitant]
     Indication: LUNG ADENOCARCINOMA METASTATIC
     Route: 041
     Dates: start: 20111108, end: 20131016
  4. CELECOX [Concomitant]
     Route: 048
     Dates: start: 20111031
  5. CELECOX [Concomitant]
     Route: 048
     Dates: start: 20131009
  6. MAGNESIUM OXIDE [Concomitant]
     Route: 048
     Dates: start: 20111031
  7. NOVAMIN (JAPAN) [Concomitant]
     Route: 048
     Dates: start: 20111031
  8. OXYCONTIN [Concomitant]
     Route: 048
     Dates: start: 20111031
  9. MAGLAX [Concomitant]
     Route: 048
     Dates: start: 20131009
  10. SENNOSIDE [Concomitant]
     Route: 048
     Dates: start: 20131009
  11. MICARDIS [Concomitant]
     Route: 048
     Dates: start: 20131009
  12. BROTIZOLAM [Concomitant]
     Route: 048
     Dates: start: 20131009
  13. FUROSEMIDE [Concomitant]
     Route: 048
     Dates: start: 20131009
  14. SEROQUEL [Concomitant]
     Route: 048
     Dates: start: 20131009

REACTIONS (4)
  - Hypertensive encephalopathy [Recovering/Resolving]
  - Hypertensive emergency [Recovered/Resolved]
  - Renal impairment [Recovered/Resolved]
  - Hypertension [Recovering/Resolving]
